FAERS Safety Report 17121384 (Version 1)
Quarter: 2019Q4

REPORT INFORMATION
  Report Type: Spontaneous
  Country: US (occurrence: US)
  Receive Date: 20191205
  Receipt Date: 20191205
  Transmission Date: 20200122
  Serious: No
  Sender: FDA-Public Use
  Company Number: None

PATIENT
  Age: 39 Year
  Sex: Female
  Weight: 74.25 kg

DRUGS (5)
  1. VITAMIN C [Concomitant]
     Active Substance: ASCORBIC ACID
  2. ENVIRODETOX [Concomitant]
  3. MULTIVITAMIN [Concomitant]
     Active Substance: VITAMINS
  4. BOTOX [Suspect]
     Active Substance: ONABOTULINUMTOXINA
     Indication: SKIN COSMETIC PROCEDURE
     Dosage: ?          QUANTITY:18 18 UNITS;OTHER FREQUENCY:ONCE;?
     Route: 058
     Dates: start: 20191114, end: 20191114
  5. VITAMIN D [Concomitant]
     Active Substance: VITAMIN D NOS

REACTIONS (10)
  - Tremor [None]
  - Eyelid disorder [None]
  - Headache [None]
  - Anxiety [None]
  - Periorbital swelling [None]
  - Blood pressure increased [None]
  - Heart rate increased [None]
  - Dizziness [None]
  - Eyelid ptosis [None]
  - Swelling [None]

NARRATIVE: CASE EVENT DATE: 20191114
